FAERS Safety Report 6198811-8 (Version None)
Quarter: 2009Q2

REPORT INFORMATION
  Report Type: 
  Country: None (occurrence: None)
  Receive Date: 20090522
  Receipt Date: 20090514
  Transmission Date: 20091009
  Serious: Yes (Hospitalization)
  Sender: FDA-Public Use
  Company Number: US-CELGENEUS-163-21880-09020177

PATIENT
  Sex: Male

DRUGS (2)
  1. REVLIMID [Suspect]
     Indication: MULTIPLE MYELOMA
     Route: 048
     Dates: start: 20090105, end: 20090101
  2. REVLIMID [Suspect]
     Route: 048
     Dates: start: 20090101

REACTIONS (7)
  - DEHYDRATION [None]
  - DIARRHOEA [None]
  - ELECTROLYTE DEPLETION [None]
  - NEUROPATHY PERIPHERAL [None]
  - OEDEMA [None]
  - SPINAL FUSION SURGERY [None]
  - VOMITING [None]
